FAERS Safety Report 25139541 (Version 1)
Quarter: 2025Q1

REPORT INFORMATION
  Report Type: Report from Study
  Country: AR (occurrence: AR)
  Receive Date: 20250331
  Receipt Date: 20250331
  Transmission Date: 20250409
  Serious: Yes (Death, Other)
  Sender: UCB
  Company Number: AR-UCBSA-2025018011

PATIENT
  Age: 77 Year
  Sex: Female

DRUGS (1)
  1. ROTIGOTINE [Suspect]
     Active Substance: ROTIGOTINE
     Indication: Parkinson^s disease
     Dosage: 4 MILLIGRAM, ONCE DAILY (QD)
     Route: 062
     Dates: start: 20210704, end: 20250315

REACTIONS (2)
  - Respiratory failure [Fatal]
  - Palliative care [Unknown]

NARRATIVE: CASE EVENT DATE: 20250315
